FAERS Safety Report 8607386 (Version 2)
Quarter: 2013Q4

REPORT INFORMATION
  Report Type: Spontaneous
  Country: US (occurrence: US)
  Receive Date: 20120611
  Receipt Date: 20131129
  Transmission Date: 20140711
  Serious: Yes (Hospitalization, Disabling, Other)
  Sender: FDA-Public Use
  Company Number: US-ASTRAZENECA-2012SE35253

PATIENT
  Sex: Female
  Weight: 66.2 kg

DRUGS (4)
  1. NEXIUM [Suspect]
     Dosage: TWO TIMES
     Route: 048
  2. PREVACID [Concomitant]
  3. LISINOPRIL [Concomitant]
  4. DIAZEPAM [Concomitant]

REACTIONS (10)
  - Hip fracture [Unknown]
  - Cardiac disorder [Unknown]
  - Cerebrovascular accident [Unknown]
  - Road traffic accident [Unknown]
  - Transient ischaemic attack [Unknown]
  - Osteoporosis [Unknown]
  - Foot fracture [Unknown]
  - Anxiety [Unknown]
  - Arthritis [Unknown]
  - Diabetes mellitus [Unknown]
